FAERS Safety Report 13479171 (Version 1)
Quarter: 2017Q2

REPORT INFORMATION
  Report Type: Spontaneous
  Country: FR (occurrence: FR)
  Receive Date: 20170425
  Receipt Date: 20170425
  Transmission Date: 20170830
  Serious: Yes (Hospitalization)
  Sender: FDA-Public Use
  Company Number: FR-TEVA-761088ROM

PATIENT
  Age: 70 Year
  Sex: Male

DRUGS (10)
  1. IFOSFAMIDE EG [Suspect]
     Active Substance: IFOSFAMIDE
     Dosage: FIFTH COURSE OF IFOSFAMIDE-VP CHEMOTHERAPY
     Route: 042
     Dates: start: 20160622, end: 20160624
  2. ALOXI [Suspect]
     Active Substance: PALONOSETRON HYDROCHLORIDE
     Indication: PREMEDICATION
     Dosage: 1 DOSAGE FORMS DAILY;
     Route: 042
     Dates: start: 20160525, end: 20160527
  3. BIONOLYTE (DEXTROSE\POTASSIUM CHLORIDE\SODIUM CHLORIDE [Concomitant]
     Active Substance: DEXTROSE\POTASSIUM CHLORIDE\SODIUM CHLORIDE
  4. IFOSFAMIDE EG [Suspect]
     Active Substance: IFOSFAMIDE
     Indication: NEOPLASM MALIGNANT
     Dosage: FOURTH COURSE OF IFOSFAMIDE-VP CHEMOTHERAPY
     Route: 042
     Dates: start: 20160525, end: 20160527
  5. DOLIPRANE [Concomitant]
     Active Substance: ACETAMINOPHEN
  6. ETOPOSIDE TEVA [Suspect]
     Active Substance: ETOPOSIDE
     Indication: NEOPLASM MALIGNANT
     Dosage: FOURTH COURSE OF IFOSFAMIDE-VP CHEMOTHERAPY
     Route: 042
     Dates: start: 20160525, end: 20160527
  7. ETOPOSIDE TEVA [Suspect]
     Active Substance: ETOPOSIDE
     Dosage: FIFTH COURSE OF IFOSFAMIDE-VP CHEMOTHERAPY
     Route: 042
     Dates: start: 20160622, end: 20160624
  8. METHYLPREDNISOLONE MYLAN 40 MG [Suspect]
     Active Substance: METHYLPREDNISOLONE
     Indication: PREMEDICATION
     Dosage: 1 DOSAGE FORMS DAILY; FORM OF ADMINISTRATION: POWDER FOR INJECTION SOLUTION
     Route: 042
     Dates: start: 20160525, end: 20160527
  9. UROMITEXAN [Suspect]
     Active Substance: MESNA
     Indication: PROPHYLAXIS
     Route: 042
     Dates: start: 20160525, end: 20160527
  10. DIFFU-K [Concomitant]
     Active Substance: POTASSIUM CHLORIDE

REACTIONS (5)
  - Anxiety [Recovered/Resolved]
  - Delirium [Recovered/Resolved]
  - Urinary incontinence [Recovered/Resolved]
  - Disinhibition [Recovered/Resolved]
  - Confusional state [Recovered/Resolved]

NARRATIVE: CASE EVENT DATE: 20160526
